FAERS Safety Report 5961348-2 (Version None)
Quarter: 2008Q4

REPORT INFORMATION
  Report Type: 
  Country: None (occurrence: None)
  Receive Date: 20081114
  Receipt Date: 20071005
  Transmission Date: 20090506
  Serious: Yes (Other)
  Sender: FDA-Public Use
  Company Number: US-WYE-H00571207

PATIENT
  Sex: Male

DRUGS (5)
  1. ADVIL COLD AND SINUS [Suspect]
     Indication: NASOPHARYNGITIS
     Dosage: 1 CAPSULE 1X PER 1 DAY, ORAL
     Route: 048
     Dates: start: 20071004, end: 20071005
  2. ADVIL COLD AND SINUS [Suspect]
     Indication: SINUS DISORDER
     Dosage: 1 CAPSULE 1X PER 1 DAY, ORAL
     Route: 048
     Dates: start: 20071004, end: 20071005
  3. ADVIL COLD AND SINUS [Suspect]
     Dosage: ORAL
     Route: 048
     Dates: start: 20040401
  4. HYDROCODONE (HYDROCODONE) [Concomitant]
  5. AMBIEN [Concomitant]

REACTIONS (1)
  - HYPERCHLORHYDRIA [None]
